FAERS Safety Report 9646637 (Version 1)
Quarter: 2013Q4

REPORT INFORMATION
  Report Type: Report from Study
  Country: JP (occurrence: JP)
  Receive Date: 20131026
  Receipt Date: 20131026
  Transmission Date: 20140711
  Serious: Yes (Hospitalization)
  Sender: FDA-Public Use
  Company Number: JP-ROCHE-1295080

PATIENT
  Age: 38 Year
  Sex: Male
  Weight: 77 kg

DRUGS (22)
  1. OMALIZUMAB [Suspect]
     Indication: ASTHMA
     Route: 058
     Dates: start: 20111118
  2. LOCHOL (FLUVASTATIN) [Concomitant]
     Route: 065
     Dates: start: 20120224, end: 20120309
  3. ZADITEN [Concomitant]
  4. SYMBICORT [Concomitant]
  5. HOKUNALIN [Concomitant]
     Route: 065
     Dates: start: 20110623
  6. KIPRES [Concomitant]
     Route: 065
     Dates: start: 20110623
  7. UNICON [Concomitant]
     Route: 065
     Dates: start: 20110623
  8. PREDONINE [Concomitant]
     Route: 065
     Dates: start: 20110623
  9. OMEPRAL [Concomitant]
     Route: 065
     Dates: start: 20111118
  10. FOSAMAX [Concomitant]
     Route: 065
     Dates: start: 20111118, end: 20120608
  11. ZYLORIC [Concomitant]
     Route: 065
     Dates: start: 20111118
  12. MAGMITT [Concomitant]
     Route: 065
     Dates: start: 20111118
  13. LAXOBERON [Concomitant]
     Route: 065
     Dates: start: 20111118
  14. RIZABEN [Concomitant]
     Route: 065
     Dates: start: 20120223
  15. EBASTEL [Concomitant]
     Route: 065
     Dates: start: 20120309
  16. FLUTICASONE PROPIONATE [Concomitant]
     Route: 065
     Dates: start: 20110212
  17. COR TYZINE [Concomitant]
     Route: 065
     Dates: start: 20110212, end: 20120123
  18. CRESTOR [Concomitant]
     Route: 065
     Dates: start: 20111118, end: 20120126
  19. ZETIA [Concomitant]
     Route: 065
     Dates: start: 20120127, end: 20120223
  20. BASEN (VOGLIBOSE) [Concomitant]
     Route: 065
     Dates: start: 20111118
  21. GLACTIV [Concomitant]
     Route: 065
     Dates: start: 20111118, end: 20120507
  22. AMARYL [Concomitant]
     Route: 065
     Dates: start: 20111202

REACTIONS (2)
  - Pancreatitis acute [Recovered/Resolved]
  - Ascites [Unknown]
